FAERS Safety Report 10217172 (Version 1)
Quarter: 2014Q2

REPORT INFORMATION
  Report Type: Spontaneous
  Country: GB (occurrence: GB)
  Receive Date: 20140604
  Receipt Date: 20140604
  Transmission Date: 20141212
  Serious: Yes (Other)
  Sender: FDA-Public Use
  Company Number: PHHY2014GB065185

PATIENT
  Age: 28 Year
  Sex: Female
  Weight: 84 kg

DRUGS (10)
  1. ENOXAPARIN [Suspect]
     Indication: PULMONARY EMBOLISM
     Dosage: 80 MG, BID (1MG/KG)
  2. BECLOMETHASONE SANDOZ [Suspect]
     Indication: ASTHMA
     Route: 055
  3. CO-CODAMOL [Suspect]
     Dosage: 25 G, UNK
  4. THIOPENTAL [Concomitant]
     Indication: MAINTENANCE OF ANAESTHESIA
     Dosage: 500 MG, UNK
  5. ALFENTANIL [Concomitant]
     Indication: MAINTENANCE OF ANAESTHESIA
     Dosage: 1 MG, UNK
  6. SUXAMETHONIUM [Concomitant]
     Dosage: 100 MG, UNK
  7. ROCURONIUM [Concomitant]
     Indication: MAINTENANCE OF ANAESTHESIA
     Dosage: 40 MG, UNK
  8. MORPHINE [Concomitant]
     Indication: MAINTENANCE OF ANAESTHESIA
     Dosage: 10 MG, UNK
  9. PARACETAMOL [Concomitant]
     Dosage: 1 G, UNK
  10. CO-AMOXICLAV [Concomitant]
     Dosage: 1.2 G, UNK

REACTIONS (15)
  - Haemorrhage in pregnancy [Unknown]
  - Uterine contractions abnormal [Unknown]
  - Tachycardia [Unknown]
  - Hepatic function abnormal [Unknown]
  - Alanine aminotransferase increased [Recovering/Resolving]
  - Blood bilirubin increased [Unknown]
  - Blood lactate dehydrogenase increased [Unknown]
  - Platelet count decreased [Unknown]
  - Drug level increased [Unknown]
  - Overdose [Unknown]
  - Abdominal tenderness [Unknown]
  - Somnolence [Unknown]
  - Nausea [Unknown]
  - Vomiting [Unknown]
  - Maternal exposure during pregnancy [Unknown]
